FAERS Safety Report 4854367-0 (Version None)
Quarter: 2005Q4

REPORT INFORMATION
  Report Type: 
  Country: None (occurrence: None)
  Receive Date: 20051213
  Receipt Date: 20051213
  Transmission Date: 20060501
  Serious: Yes (Hospitalization)
  Sender: FDA-Public Use
  Company Number: None

PATIENT
  Sex: Male
  Weight: 103 kg

DRUGS (4)
  1. INTERFERON AL B [Suspect]
     Indication: RENAL CANCER METASTATIC
     Dosage: 500 MCG QD SC
     Route: 058
     Dates: start: 20051017, end: 20051128
  2. TYLENOL [Concomitant]
  3. SYNTHROID [Concomitant]
  4. ZANTAC [Concomitant]

REACTIONS (1)
  - BONE DISORDER [None]
